FAERS Safety Report 10949055 (Version 1)
Quarter: 2015Q1

REPORT INFORMATION
  Report Type: Report from Study
  Country: US (occurrence: US)
  Receive Date: 20150324
  Receipt Date: 20150324
  Transmission Date: 20150721
  Serious: Yes (Other)
  Sender: FDA-Public Use
  Company Number: US-SA-2015SA035489

PATIENT
  Age: 44 Year
  Sex: Female

DRUGS (1)
  1. LANTUS [Suspect]
     Active Substance: INSULIN GLARGINE
     Indication: DIABETES MELLITUS
     Dosage: DOSE:24-25 UNITS
     Route: 065
     Dates: start: 2000

REACTIONS (6)
  - Neuropathy peripheral [Unknown]
  - Toe amputation [Unknown]
  - Blood cholesterol increased [Unknown]
  - Hypertension [Unknown]
  - Hypoaesthesia [Unknown]
  - Incorrect dose administered [Unknown]

NARRATIVE: CASE EVENT DATE: 2011
